FAERS Safety Report 25887371 (Version 3)
Quarter: 2025Q4

REPORT INFORMATION
  Report Type: Report from Study
  Country: CA (occurrence: CA)
  Receive Date: 20251006
  Receipt Date: 20251121
  Transmission Date: 20260118
  Serious: Yes (Other)
  Sender: ABBVIE
  Company Number: CA-ABBVIE-6486908

PATIENT
  Age: 72 Year
  Sex: Female

DRUGS (5)
  1. SKYRIZI [Suspect]
     Active Substance: RISANKIZUMAB-RZAA
     Indication: Psoriatic arthropathy
     Dosage: FORM STRENGTH 150 MG?LAST ADMINISTRATION DATE 2025
     Route: 058
     Dates: start: 20250710
  2. SKYRIZI [Suspect]
     Active Substance: RISANKIZUMAB-RZAA
     Indication: Psoriasis
     Dosage: FORM STRENGTH 150 MG
     Route: 058
     Dates: start: 20251003
  3. SKYRIZI [Suspect]
     Active Substance: RISANKIZUMAB-RZAA
     Route: 058
     Dates: start: 2024
  4. ATIVAN [Concomitant]
     Active Substance: LORAZEPAM
     Indication: Product used for unknown indication
  5. Covid-19 vaccines [Concomitant]
     Indication: COVID-19 immunisation

REACTIONS (5)
  - Seizure [Unknown]
  - Seizure [Recovered/Resolved]
  - Dysarthria [Unknown]
  - Facial discomfort [Unknown]
  - Epilepsy [Unknown]

NARRATIVE: CASE EVENT DATE: 20250710
